FAERS Safety Report 19823078 (Version 1)
Quarter: 2021Q3

REPORT INFORMATION
  Report Type: Spontaneous
  Country: FR (occurrence: FR)
  Receive Date: 20210913
  Receipt Date: 20210913
  Transmission Date: 20211014
  Serious: Yes (Hospitalization)
  Sender: FDA-Public Use
  Company Number: FR-009507513-2109FRA001838

PATIENT
  Age: 64 Year
  Sex: Male
  Weight: 63 kg

DRUGS (7)
  1. CARBOPLATINE [Suspect]
     Active Substance: CARBOPLATIN
     Indication: LARYNGEAL CANCER
     Dosage: 485 MILLIGRAM, 1 CYCLICAL
     Route: 042
     Dates: start: 20210716
  2. KEYTRUDA [Suspect]
     Active Substance: PEMBROLIZUMAB
     Indication: LARYNGEAL CANCER
     Dosage: 200 MILLIGRAM, 1 CYCLICAL
     Route: 042
     Dates: start: 20210716
  3. AMIODARONE [Concomitant]
     Active Substance: AMIODARONE
     Dosage: UNK
  4. ROSUVASTATIN. [Concomitant]
     Active Substance: ROSUVASTATIN
     Dosage: UNK
  5. BISOPROLOL FUMARATE. [Concomitant]
     Active Substance: BISOPROLOL FUMARATE
     Dosage: UNK
  6. PREVISCAN [FLUINDIONE] [Concomitant]
     Active Substance: FLUINDIONE
     Dosage: UNK
  7. FLUOROURACILE [Suspect]
     Active Substance: FLUOROURACIL
     Indication: LARYNGEAL CANCER
     Dosage: 6800 MILLIGRAM AT AN INTERVAL OF 96 HOURS
     Route: 042
     Dates: start: 20210716, end: 20210719

REACTIONS (1)
  - Acute coronary syndrome [Recovering/Resolving]

NARRATIVE: CASE EVENT DATE: 20210719
